FAERS Safety Report 9116431 (Version 6)
Quarter: 2013Q3

REPORT INFORMATION
  Report Type: Spontaneous
  Country: US (occurrence: US)
  Receive Date: 20130225
  Receipt Date: 20130827
  Transmission Date: 20140515
  Serious: Yes (Other)
  Sender: FDA-Public Use
  Company Number: US-PFIZER INC-2013028317

PATIENT
  Age: 74 Year
  Sex: Female
  Weight: 86 kg

DRUGS (4)
  1. PREMARIN [Suspect]
     Indication: VULVOVAGINAL DRYNESS
     Dosage: 2 G, SOMETIMES TWO TIMES IN A WEEK AND SOMETIMES WEEKLY
     Route: 067
     Dates: start: 2007
  2. PREMARIN [Suspect]
     Indication: BLOOD OESTROGEN DECREASED
     Dosage: 2 G, SOMETIMES TWO TIMES IN A WEEK AND SOMETIMES WEEKLY
     Route: 067
     Dates: start: 201211
  3. PREMARIN [Suspect]
     Dosage: 2 G, SOMETIMES TWO TIMES IN A WEEK AND SOMETIMES WEEKLY
     Route: 067
  4. PREMARIN [Suspect]
     Dosage: 2 G, SOMETIMES TWO TIMES IN A WEEK AND SOMETIMES WEEKLY
     Route: 067

REACTIONS (1)
  - Kidney infection [Unknown]
